FAERS Safety Report 9746533 (Version 1)
Quarter: 2013Q4

REPORT INFORMATION
  Report Type: Spontaneous
  Country: JP (occurrence: JP)
  Receive Date: 20131211
  Receipt Date: 20131211
  Transmission Date: 20140711
  Serious: Yes (Hospitalization)
  Sender: FDA-Public Use
  Company Number: PHHY2013JP144119

PATIENT
  Sex: Female

DRUGS (3)
  1. DIOVAN [Suspect]
     Dosage: UNK UKN, UNK
     Route: 048
  2. THYRADIN [Concomitant]
     Dosage: UNK UKN, UNK
     Route: 048
  3. CILNIDIPINE [Concomitant]
     Dosage: UNK UKN, UNK
     Route: 048

REACTIONS (5)
  - Loss of consciousness [Unknown]
  - Dizziness [Unknown]
  - Thirst [Unknown]
  - Oropharyngeal pain [Unknown]
  - Blood pressure increased [Unknown]
